FAERS Safety Report 7403084-1 (Version None)
Quarter: 2011Q2

REPORT INFORMATION
  Report Type: 
  Country: None (occurrence: None)
  Receive Date: 20110408
  Receipt Date: 20110311
  Transmission Date: 20111010
  Serious: No
  Sender: FDA-Public Use
  Company Number: US-NOVEN-11US001984

PATIENT
  Sex: Male

DRUGS (1)
  1. FENTANYL [Suspect]
     Indication: INTERVERTEBRAL DISC DEGENERATION
     Dosage: 100 UG, 2 PATCHES EVERY 48 HOURS
     Dates: start: 20010101

REACTIONS (4)
  - FOAMING AT MOUTH [None]
  - INADEQUATE ANALGESIA [None]
  - DRY MOUTH [None]
  - DRUG WITHDRAWAL SYNDROME [None]
